FAERS Safety Report 25500760 (Version 1)
Quarter: 2025Q3

REPORT INFORMATION
  Report Type: Spontaneous
  Country: US (occurrence: None)
  Receive Date: 20250701
  Receipt Date: 20250701
  Transmission Date: 20251021
  Serious: No
  Sender: INCYTE
  Company Number: US-INCYTE CORPORATION-2025IN006832

PATIENT
  Age: 67 Year

DRUGS (2)
  1. JAKAFI [Suspect]
     Active Substance: RUXOLITINIB
     Indication: Thrombocytosis
     Route: 065
  2. JAKAFI [Suspect]
     Active Substance: RUXOLITINIB
     Dosage: 5 MILLIGRAM, BID

REACTIONS (6)
  - Off label use [Unknown]
  - Mouth haemorrhage [Unknown]
  - Palate injury [Unknown]
  - Tongue exfoliation [Unknown]
  - Tongue haemorrhage [Unknown]
  - Jaw disorder [Unknown]
